FAERS Safety Report 6221830-X (Version None)
Quarter: 2009Q2

REPORT INFORMATION
  Report Type: 
  Country: None (occurrence: None)
  Receive Date: 20090609
  Receipt Date: 20090529
  Transmission Date: 20091009
  Serious: Yes (Other)
  Sender: FDA-Public Use
  Company Number: US-WYE-H07818509

PATIENT
  Age: 48 Year
  Sex: Female

DRUGS (2)
  1. PREMARIN [Suspect]
     Indication: HORMONE REPLACEMENT THERAPY
  2. PROVERA [Suspect]

REACTIONS (4)
  - BREAST CANCER FEMALE [None]
  - BREAST CANCER RECURRENT [None]
  - ENDOMETRIAL CANCER [None]
  - TOBACCO USER [None]
